FAERS Safety Report 17288249 (Version 2)
Quarter: 2020Q2

REPORT INFORMATION
  Report Type: Report from Study
  Country: CA (occurrence: CA)
  Receive Date: 20200120
  Receipt Date: 20200406
  Transmission Date: 20200713
  Serious: No
  Sender: FDA-Public Use
  Company Number: CA-TOLMAR, INC.-19CA001340

PATIENT
  Age: 82 Year
  Sex: Male

DRUGS (3)
  1. ELIGARD [Suspect]
     Active Substance: LEUPROLIDE ACETATE
     Dosage: UNK
     Route: 065
     Dates: start: 20191008
  2. MAXIFLO [Concomitant]
     Indication: BLADDER DISORDER
     Dosage: 0.4 MG, QD
     Route: 048
     Dates: start: 201709
  3. ELIGARD [Suspect]
     Active Substance: LEUPROLIDE ACETATE
     Indication: PROSTATE CANCER
     Dosage: 30 MG, EVERY 4 MONTHS
     Route: 058
     Dates: start: 20181022

REACTIONS (5)
  - Hot flush [Not Recovered/Not Resolved]
  - Erectile dysfunction [Not Recovered/Not Resolved]
  - Hyperhidrosis [Not Recovered/Not Resolved]
  - Haemorrhoidal haemorrhage [Not Recovered/Not Resolved]
  - Haemorrhoids [Not Recovered/Not Resolved]

NARRATIVE: CASE EVENT DATE: 2018
